FAERS Safety Report 7965685-1 (Version None)
Quarter: 2011Q4

REPORT INFORMATION
  Report Type: 
  Country: None (occurrence: None)
  Receive Date: 20111208
  Receipt Date: 20111128
  Transmission Date: 20120403
  Serious: Yes (Death, Hospitalization)
  Sender: FDA-Public Use
  Company Number: PH-BAXTER-2011BH037743

PATIENT
  Age: 81 Year
  Sex: Male

DRUGS (1)
  1. DIANEAL [Suspect]
     Indication: PERITONEAL DIALYSIS
     Route: 033
     Dates: start: 20110427, end: 20111116

REACTIONS (5)
  - MULTI-ORGAN FAILURE [None]
  - COMA [None]
  - DYSPNOEA [None]
  - PULMONARY OEDEMA [None]
  - OEDEMA PERIPHERAL [None]
